FAERS Safety Report 23821588 (Version 1)
Quarter: 2024Q2

REPORT INFORMATION
  Report Type: Spontaneous
  Country: US (occurrence: None)
  Receive Date: 20240505
  Receipt Date: 20240505
  Transmission Date: 20240716
  Serious: Yes (Disabling)
  Sender: FDA-Public Use
  Company Number: None

PATIENT
  Age: 26 Year
  Sex: Female
  Weight: 90 kg

DRUGS (1)
  1. LEXAPRO [Suspect]
     Active Substance: ESCITALOPRAM OXALATE
     Indication: Depression
     Dosage: FREQUENCY : DAILY;?
     Route: 048
     Dates: start: 20231105, end: 20231210

REACTIONS (15)
  - Paraesthesia [None]
  - Sensory loss [None]
  - Sexual dysfunction [None]
  - Anorgasmia [None]
  - Tinnitus [None]
  - Malaise [None]
  - Asthenia [None]
  - Pyrexia [None]
  - Pain [None]
  - Dry eye [None]
  - Dry mouth [None]
  - Burning sensation [None]
  - Ageusia [None]
  - Anosmia [None]
  - Quality of life decreased [None]

NARRATIVE: CASE EVENT DATE: 20231210
